FAERS Safety Report 24007116 (Version 2)
Quarter: 2024Q3

REPORT INFORMATION
  Report Type: Report from Study
  Country: US (occurrence: US)
  Receive Date: 20240624
  Receipt Date: 20240708
  Transmission Date: 20241017
  Serious: No
  Sender: APELLIS PHARMACEUTICALS
  Company Number: US-APELLIS-2024-APL-0000186

PATIENT

DRUGS (2)
  1. PEGCETACOPLAN [Suspect]
     Active Substance: PEGCETACOPLAN
     Indication: Paroxysmal nocturnal haemoglobinuria
     Dosage: 1080MG/20ML ONCE WEEKLY
     Route: 058
     Dates: start: 20230315
  2. FABHALTA [Concomitant]
     Active Substance: IPTACOPAN HYDROCHLORIDE
     Indication: Paroxysmal nocturnal haemoglobinuria
     Dosage: TWICE DAILY
     Route: 048
     Dates: start: 20240614

REACTIONS (4)
  - Catheter site swelling [Unknown]
  - Catheter site pain [Unknown]
  - Catheter site erythema [Unknown]
  - Joint range of motion decreased [Unknown]
